FAERS Safety Report 9331398 (Version 2)
Quarter: 2014Q2

REPORT INFORMATION
  Report Type: Report from Study
  Country: JP (occurrence: JP)
  Receive Date: 20130605
  Receipt Date: 20140611
  Transmission Date: 20141212
  Serious: Yes (Other)
  Sender: FDA-Public Use
  Company Number: PHHY2011JP82577

PATIENT
  Age: 65 Year
  Sex: Male

DRUGS (14)
  1. AMN107 [Suspect]
     Indication: CHRONIC MYELOID LEUKAEMIA
     Dosage: 600 MG, DAILY
     Route: 048
     Dates: start: 20110419
  2. AMARYL [Concomitant]
     Indication: DIABETES MELLITUS
     Dosage: 1 MG, UNK
     Route: 048
  3. AMARYL [Concomitant]
     Dosage: 1.5 MG, UNK
     Route: 048
  4. ACTOS [Concomitant]
     Indication: DIABETES MELLITUS
     Dosage: 30 MG
     Route: 048
  5. MELBIN [Concomitant]
     Indication: DIABETES MELLITUS
     Dosage: 750 MG
     Route: 048
  6. VOGLIBOSE [Concomitant]
     Indication: DIABETES MELLITUS
     Dosage: 0.6 MG
     Route: 048
  7. LIPIDIL [Concomitant]
     Indication: HYPERLIPIDAEMIA
     Dosage: 1 DF
     Route: 048
  8. BAYASPIRIN [Concomitant]
     Indication: DIABETES MELLITUS
     Dosage: 100 MG
     Route: 048
  9. GASTER [Concomitant]
     Indication: GASTRITIS
     Dosage: 20 MG, UNK
     Route: 048
  10. LANTUS [Concomitant]
     Indication: DIABETES MELLITUS
     Dosage: 7 IU, DAILY
     Route: 058
     Dates: start: 20110805, end: 20111025
  11. TAKEPRON [Concomitant]
     Dosage: 15 MG, UNK
     Route: 048
     Dates: start: 20111026
  12. METGLUCO [Concomitant]
     Dosage: 1.5 MG, UNK
     Route: 048
     Dates: start: 20111026
  13. BEZATATE [Concomitant]
     Dosage: 200 MG, UNK
     Route: 048
     Dates: start: 20111026
  14. ZETIA [Concomitant]
     Dosage: 10 MG, UNK
     Route: 048
     Dates: start: 20120401

REACTIONS (1)
  - Hyperglycaemia [Not Recovered/Not Resolved]
